FAERS Safety Report 19100545 (Version 1)
Quarter: 2021Q2

REPORT INFORMATION
  Report Type: Spontaneous
  Country: NL (occurrence: NL)
  Receive Date: 20210407
  Receipt Date: 20210407
  Transmission Date: 20210717
  Serious: Yes (Other)
  Sender: FDA-Public Use
  Company Number: NL-AUROBINDO-AUR-APL-2021-014036

PATIENT
  Sex: Female
  Weight: 73 kg

DRUGS (3)
  1. FERROFUMARAAT [Concomitant]
     Active Substance: FERROUS FUMARATE
     Indication: PRODUCT USED FOR UNKNOWN INDICATION
     Dosage: 200 MILLIGRAM
     Route: 065
  2. LEVONORGESTREL+ETHINYLESTRADIOL 150/30 ?G FILM COATED TABLET [Suspect]
     Active Substance: ETHINYL ESTRADIOL\LEVONORGESTREL
     Indication: HEAVY MENSTRUAL BLEEDING
     Dosage: 1 DOSAGE FORM, ONCE A DAY (1 X PER DAG 1 STUK)
     Route: 065
     Dates: start: 20210205, end: 20210301
  3. COLECALCIFEROL [Concomitant]
     Active Substance: CHOLECALCIFEROL
     Indication: PRODUCT USED FOR UNKNOWN INDICATION
     Dosage: 5600 UNITS
     Route: 065

REACTIONS (1)
  - Pulmonary embolism [Recovering/Resolving]
